FAERS Safety Report 18911431 (Version 2)
Quarter: 2025Q2

REPORT INFORMATION
  Report Type: Report from Study
  Country: US (occurrence: US)
  Receive Date: 20210218
  Receipt Date: 20250409
  Transmission Date: 20250716
  Serious: Yes (Other)
  Sender: ROCHE
  Company Number: US-ROCHE-2769562

PATIENT
  Age: 10 Year
  Sex: Female
  Weight: 65.771 kg

DRUGS (4)
  1. ACTEMRA [Suspect]
     Active Substance: TOCILIZUMAB
     Indication: Juvenile idiopathic arthritis
     Route: 042
  2. ACTEMRA [Suspect]
     Active Substance: TOCILIZUMAB
     Dosage: NOT TO EXCEED 600 MG PER INFUSION.
     Route: 042
     Dates: start: 20240522
  3. CORTISONE [Concomitant]
     Active Substance: CORTISONE
  4. LIDOCAINE AND PRILOCAINE [Concomitant]
     Active Substance: LIDOCAINE\PRILOCAINE
     Dosage: 2.5%
     Route: 061
     Dates: start: 20230205, end: 20240819

REACTIONS (5)
  - Intentional product use issue [Unknown]
  - Iridocyclitis [Unknown]
  - Posture abnormal [Unknown]
  - Sacroiliitis [Unknown]
  - Neck pain [Unknown]
